FAERS Safety Report 6969612-5 (Version None)
Quarter: 2010Q3

REPORT INFORMATION
  Report Type: 
  Country: None (occurrence: None)
  Receive Date: 20100907
  Receipt Date: 20100824
  Transmission Date: 20110219
  Serious: Yes (Other)
  Sender: FDA-Public Use
  Company Number: PHHY2010BR56712

PATIENT
  Age: 67 Year
  Sex: Female

DRUGS (2)
  1. AMLODIPINE BESYLATE AND VALSARTAN [Suspect]
  2. EXFORGE [Suspect]
     Indication: HYPERTENSION

REACTIONS (2)
  - ARTHRITIS [None]
  - POLLAKIURIA [None]
